FAERS Safety Report 12566798 (Version 2)
Quarter: 2016Q3

REPORT INFORMATION
  Report Type: Spontaneous
  Country: RO (occurrence: RO)
  Receive Date: 20160718
  Receipt Date: 20160801
  Transmission Date: 20161109
  Serious: Yes (Life-Threatening)
  Sender: FDA-Public Use
  Company Number: RO-GE HEALTHCARE MEDICAL DIAGNOSTICS-OMPQ-PR-1607S-1170

PATIENT
  Age: 68 Year
  Sex: Male

DRUGS (2)
  1. OMNIPAQUE [Suspect]
     Active Substance: IOHEXOL
     Indication: PRODUCT USED FOR UNKNOWN INDICATION
     Route: 042
     Dates: start: 20160704, end: 20160704
  2. OMNIPAQUE [Suspect]
     Active Substance: IOHEXOL
     Indication: DIAGNOSTIC PROCEDURE

REACTIONS (4)
  - Depressed level of consciousness [Recovered/Resolved]
  - Chills [Recovered/Resolved]
  - Hypotension [Recovered/Resolved]
  - Wheezing [Recovered/Resolved]

NARRATIVE: CASE EVENT DATE: 20160704
